FAERS Safety Report 18481547 (Version 1)
Quarter: 2020Q4

REPORT INFORMATION
  Report Type: Other
  Country: US (occurrence: CN)
  Receive Date: 20201109
  Receipt Date: 20201109
  Transmission Date: 20210114
  Serious: Yes (Hospitalization, Other)
  Sender: FDA-Public Use
  Company Number: CN-BRECKENRIDGE PHARMACEUTICAL, INC.-2093730

PATIENT
  Age: 66 Year
  Sex: Female

DRUGS (1)
  1. OMEPRAZOLE. [Suspect]
     Active Substance: OMEPRAZOLE
     Indication: ABDOMINAL DISTENSION
     Route: 048

REACTIONS (4)
  - Drug reaction with eosinophilia and systemic symptoms [None]
  - Renal tubular atrophy [None]
  - Metabolic acidosis [None]
  - Acute kidney injury [None]
